FAERS Safety Report 7238455-X (Version None)
Quarter: 2011Q1

REPORT INFORMATION
  Report Type: 
  Country: None (occurrence: None)
  Receive Date: 20110121
  Receipt Date: 20110113
  Transmission Date: 20110831
  Serious: Yes (Other)
  Sender: FDA-Public Use
  Company Number: CA-JNJFOC-20110104088

PATIENT
  Sex: Female
  Weight: 50 kg

DRUGS (5)
  1. REMICADE [Suspect]
     Indication: CROHN'S DISEASE
     Route: 042
  2. IMURAN [Concomitant]
     Dosage: 2.5 TABS DAILY
     Route: 048
  3. SYNTHROID [Concomitant]
  4. ATIVAN [Concomitant]
     Route: 048
  5. PARIET [Concomitant]

REACTIONS (1)
  - ANAL FISTULA [None]
